FAERS Safety Report 24878286 (Version 1)
Quarter: 2025Q1

REPORT INFORMATION
  Report Type: Spontaneous
  Country: ES (occurrence: ES)
  Receive Date: 20250123
  Receipt Date: 20250123
  Transmission Date: 20250409
  Serious: Yes (Other)
  Sender: ASTELLAS
  Company Number: ES-ASTELLAS-2025-AER-004180

PATIENT
  Age: 61 Year
  Sex: Male

DRUGS (5)
  1. XOSPATA [Suspect]
     Active Substance: GILTERITINIB
     Indication: Product used for unknown indication
     Route: 050
  2. XOSPATA [Suspect]
     Active Substance: GILTERITINIB
     Route: 050
     Dates: start: 20250121
  3. ISAVUCONAZOLE [Suspect]
     Active Substance: ISAVUCONAZOLE
     Indication: Product used for unknown indication
     Route: 065
  4. POSACONAZOLE [Suspect]
     Active Substance: POSACONAZOLE
     Indication: Product used for unknown indication
     Route: 065
  5. POSACONAZOLE [Suspect]
     Active Substance: POSACONAZOLE
     Route: 065

REACTIONS (1)
  - Pneumonia [Recovering/Resolving]
